FAERS Safety Report 20374230 (Version 1)
Quarter: 2022Q1

REPORT INFORMATION
  Report Type: Report from Study
  Country: US (occurrence: US)
  Receive Date: 20220125
  Receipt Date: 20220125
  Transmission Date: 20220424
  Serious: Yes (Death, Hospitalization)
  Sender: FDA-Public Use
  Company Number: US-MYLANLABS-2022M1006650

PATIENT
  Age: 61 Year
  Sex: Female

DRUGS (2)
  1. ALLOPURINOL [Suspect]
     Active Substance: ALLOPURINOL
     Indication: Gout
     Dosage: UNK
     Route: 065
  2. PREDNISONE [Suspect]
     Active Substance: PREDNISONE
     Indication: Drug-induced liver injury
     Dosage: UNK
     Route: 065

REACTIONS (4)
  - Drug-induced liver injury [Fatal]
  - Drug reaction with eosinophilia and systemic symptoms [Fatal]
  - Hepatic failure [Fatal]
  - Drug ineffective [Fatal]
